FAERS Safety Report 7073923-5 (Version None)
Quarter: 2010Q4

REPORT INFORMATION
  Report Type: 
  Country: None (occurrence: None)
  Receive Date: 20101029
  Receipt Date: 20101020
  Transmission Date: 20110411
  Serious: Yes (Hospitalization, Other)
  Sender: FDA-Public Use
  Company Number: US-SANOFI-AVENTIS-2010SA065166

PATIENT
  Age: 72 Year
  Sex: Male
  Weight: 62.7 kg

DRUGS (14)
  1. LASIX [Suspect]
     Route: 048
  2. BLINDED THERAPY [Suspect]
     Route: 048
     Dates: start: 20100520
  3. ALL OTHER THERAPEUTIC PRODUCTS [Suspect]
     Dosage: 3.5 GY/15 FRACTIONS (5 DAYS A WEEK X3 WEEKS)
     Route: 065
     Dates: start: 20100520
  4. KEFLEX [Suspect]
     Route: 048
  5. REGULAR INSULIN [Concomitant]
     Dosage: SLIDING SCALE
     Route: 058
  6. INSULIN BOVINE [Concomitant]
  7. ACTIFED [Concomitant]
     Dosage: AS REQUIRED
  8. DEXAMETHASONE [Concomitant]
     Route: 048
     Dates: start: 20100728
  9. LIPITOR [Concomitant]
     Route: 048
  10. FOLIC ACID [Concomitant]
     Route: 048
  11. MULTI-VITAMINS [Concomitant]
     Route: 048
  12. VITAMIN B [Concomitant]
     Route: 048
  13. CITALOPRAM HYDROBROMIDE [Concomitant]
     Route: 048
  14. KEPPRA [Concomitant]
     Route: 048

REACTIONS (3)
  - DEHYDRATION [None]
  - ENTEROCOLITIS INFECTIOUS [None]
  - HYPONATRAEMIA [None]
